FAERS Safety Report 15275323 (Version 1)
Quarter: 2018Q3

REPORT INFORMATION
  Report Type: Spontaneous
  Country: US (occurrence: US)
  Receive Date: 20180727
  Receipt Date: 20180727
  Transmission Date: 20181010
  Serious: No
  Sender: FDA-Public Use
  Company Number: None

PATIENT
  Age: 63 Year
  Sex: Female

DRUGS (1)
  1. IBRANCE [Suspect]
     Active Substance: PALBOCICLIB
     Dates: start: 20180706, end: 20180713

REACTIONS (6)
  - Pyrexia [None]
  - Chills [None]
  - Tremor [None]
  - Platelet count decreased [None]
  - White blood cell count decreased [None]
  - Pain [None]

NARRATIVE: CASE EVENT DATE: 20180713
